FAERS Safety Report 9169711 (Version 3)
Quarter: 2013Q4

REPORT INFORMATION
  Report Type: Spontaneous
  Country: FR (occurrence: FR)
  Receive Date: 20130318
  Receipt Date: 20131023
  Transmission Date: 20140711
  Serious: Yes (Hospitalization)
  Sender: FDA-Public Use
  Company Number: PHHY2013FR025708

PATIENT
  Age: 70 Year
  Sex: Female

DRUGS (11)
  1. FEMARA [Suspect]
     Indication: BREAST CANCER
     Dosage: 2.5 MG, QD
     Route: 048
     Dates: start: 201005
  2. IBUPROFEN ^TY^ [Suspect]
     Dosage: UNK
     Route: 048
     Dates: start: 2007
  3. IMOVANE [Suspect]
     Dosage: UNK
     Route: 048
     Dates: start: 1990
  4. EFFERALGAN CODEINE [Suspect]
     Dosage: UNK
     Route: 048
     Dates: start: 2000
  5. INEXIUM//ESOMEPRAZOLE MAGNESIUM [Suspect]
     Route: 048
  6. LIPANTHYL [Suspect]
     Route: 048
  7. TOPALGIC ^HOUDE^ [Suspect]
     Route: 048
  8. FOLIC ACID [Suspect]
     Route: 048
  9. FUMAFER [Suspect]
     Route: 048
  10. BRONCHODUAL [Suspect]
  11. DAFALGAN [Concomitant]
     Dosage: UNK

REACTIONS (1)
  - Pulmonary embolism [Recovered/Resolved]
